FAERS Safety Report 24974278 (Version 2)
Quarter: 2025Q1

REPORT INFORMATION
  Report Type: Spontaneous
  Country: US (occurrence: US)
  Receive Date: 20250217
  Receipt Date: 20250225
  Transmission Date: 20250409
  Serious: Yes (Hospitalization, Other)
  Sender: VIIV
  Company Number: US-VIIV HEALTHCARE-US2025017700

PATIENT

DRUGS (1)
  1. DOVATO [Suspect]
     Active Substance: DOLUTEGRAVIR SODIUM\LAMIVUDINE
     Indication: Product used for unknown indication
     Dosage: 1 DF, QD
     Route: 048
     Dates: start: 20230228

REACTIONS (3)
  - Bone cancer [Not Recovered/Not Resolved]
  - Cancer pain [Recovering/Resolving]
  - Dehydration [Recovering/Resolving]
